FAERS Safety Report 8032627-2 (Version None)
Quarter: 2012Q1

REPORT INFORMATION
  Report Type: 
  Country: None (occurrence: None)
  Receive Date: 20120110
  Receipt Date: 20110726
  Transmission Date: 20120608
  Serious: No
  Sender: FDA-Public Use
  Company Number: US-COVIDIEN/TYCO HEALTHCARE/MALLINCKRODT-T201101468

PATIENT
  Sex: Female

DRUGS (1)
  1. OPTIRAY 320 [Suspect]
     Indication: COMPUTERISED TOMOGRAM
     Dosage: 120 ML, SINGLE
     Route: 042
     Dates: start: 20110722, end: 20110722

REACTIONS (3)
  - SNEEZING [None]
  - URTICARIA [None]
  - THROAT IRRITATION [None]
